FAERS Safety Report 18233036 (Version 1)
Quarter: 2020Q3

REPORT INFORMATION
  Report Type: Spontaneous
  Country: US (occurrence: US)
  Receive Date: 20200904
  Receipt Date: 20200904
  Transmission Date: 20201103
  Serious: No
  Sender: FDA-Public Use
  Company Number: US-TEVA-2020-US-1823755

PATIENT
  Sex: Female

DRUGS (1)
  1. LAMOTRIGINE GENERIC [Suspect]
     Active Substance: LAMOTRIGINE
     Route: 065

REACTIONS (2)
  - Therapeutic product effect incomplete [Unknown]
  - Adverse event [Unknown]
